FAERS Safety Report 20384518 (Version 2)
Quarter: 2022Q1

REPORT INFORMATION
  Report Type: Spontaneous
  Country: JP (occurrence: JP)
  Receive Date: 20220127
  Receipt Date: 20220210
  Transmission Date: 20220423
  Serious: Yes (Hospitalization)
  Sender: FDA-Public Use
  Company Number: JP-ELI_LILLY_AND_COMPANY-JP202201007964

PATIENT
  Sex: Female

DRUGS (14)
  1. OLUMIANT [Suspect]
     Active Substance: BARICITINIB
     Indication: Dermatitis atopic
     Dosage: 4 MG, DAILY
     Route: 048
     Dates: start: 20210804, end: 20211231
  2. OLOPATADINE HYDROCHLORIDE [Concomitant]
     Active Substance: OLOPATADINE HYDROCHLORIDE
     Indication: Dermatitis atopic
     Dosage: 20 MG, DAILY
     Route: 048
  3. CLOBETASOL [Concomitant]
     Active Substance: CLOBETASOL
     Indication: Dermatitis atopic
     Dosage: UNK UNK, DAILY
     Route: 062
  4. GLYCOSAMINOGLYCANS [Concomitant]
     Active Substance: GLYCOSAMINOGLYCANS
     Indication: Dermatitis atopic
     Route: 062
  5. BETAMETHASONE DIPROPIONATE [Concomitant]
     Active Substance: BETAMETHASONE DIPROPIONATE
     Indication: Dermatitis atopic
     Dosage: 15 UNK
     Route: 062
  6. DRENISON N [Concomitant]
     Indication: Dermatitis atopic
     Route: 062
  7. CYCLOSERINE [Concomitant]
     Active Substance: CYCLOSERINE
     Indication: Dermatitis atopic
     Route: 062
  8. UREA [Concomitant]
     Active Substance: UREA
     Indication: Dermatitis atopic
     Route: 062
  9. MIRTAZAPINE [Concomitant]
     Active Substance: MIRTAZAPINE
     Indication: Depression
     Dosage: 15 MG, DAILY
     Route: 048
     Dates: start: 20190220
  10. VESICARE [Concomitant]
     Active Substance: SOLIFENACIN SUCCINATE
     Indication: Hypertonic bladder
     Dosage: 5 MG, DAILY
     Route: 048
     Dates: start: 20201028
  11. LUNESTA [Concomitant]
     Active Substance: ESZOPICLONE
     Indication: Insomnia
     Dosage: 2 MG, DAILY
     Route: 048
     Dates: start: 20160810
  12. CYMBALTA [Concomitant]
     Active Substance: DULOXETINE HYDROCHLORIDE
     Indication: Depression
     Dosage: 60 MG, DAILY
     Route: 048
     Dates: start: 20161228
  13. DAYVIGO [Concomitant]
     Active Substance: LEMBOREXANT
     Indication: Insomnia
     Dosage: 10 MG, DAILY
     Route: 048
     Dates: start: 20210512
  14. DIENOGEST [Concomitant]
     Active Substance: DIENOGEST
     Indication: Dysmenorrhoea
     Dosage: 1 MG, DAILY
     Route: 048
     Dates: start: 20170419

REACTIONS (3)
  - Cellulitis [Recovered/Resolved]
  - Diarrhoea [Recovered/Resolved]
  - Herpes zoster [Recovered/Resolved]

NARRATIVE: CASE EVENT DATE: 20211203
